FAERS Safety Report 4487217-5 (Version None)
Quarter: 2004Q4

REPORT INFORMATION
  Report Type: 
  Country: None (occurrence: None)
  Receive Date: 20041022
  Receipt Date: 20041008
  Transmission Date: 20050328
  Serious: Yes (Hospitalization)
  Sender: FDA-Public Use
  Company Number: 2004AP04881

PATIENT
  Age: 62 Year
  Sex: Female
  Weight: 50 kg

DRUGS (5)
  1. IRESSA [Suspect]
     Indication: NON-SMALL CELL LUNG CANCER
     Dosage: 250 MG DAILY PO
     Route: 048
     Dates: start: 20040901
  2. CO-DIOVAN [Concomitant]
  3. MYBULEN [Concomitant]
  4. SPIRACTIN [Concomitant]
  5. PREMARIN [Concomitant]

REACTIONS (1)
  - RENAL FAILURE ACUTE [None]
